FAERS Safety Report 9492683 (Version 2)
Quarter: 2013Q3

REPORT INFORMATION
  Report Type: Spontaneous
  Country: GB (occurrence: GB)
  Receive Date: 20130830
  Receipt Date: 20130830
  Transmission Date: 20140515
  Serious: Yes (Other)
  Sender: FDA-Public Use
  Company Number: GB-ASTRAZENECA-2013SE49132

PATIENT
  Sex: Male

DRUGS (5)
  1. SYMBICORT [Suspect]
     Indication: CHRONIC OBSTRUCTIVE PULMONARY DISEASE
     Dosage: 400/12 UNKNOWN FREQUENCY
     Route: 055
     Dates: start: 20100225
  2. SYMBICORT [Suspect]
     Indication: ASTHMA
     Dosage: 400/12 UNKNOWN FREQUENCY
     Route: 055
     Dates: start: 20100225
  3. SYMBICORT [Suspect]
     Indication: CHRONIC OBSTRUCTIVE PULMONARY DISEASE
     Dosage: 400/12 UNKNOWN FREQUENCY AS NEEDED
     Route: 055
     Dates: start: 20100225
  4. SYMBICORT [Suspect]
     Indication: ASTHMA
     Dosage: 400/12 UNKNOWN FREQUENCY AS NEEDED
     Route: 055
     Dates: start: 20100225
  5. BRICANYL [Suspect]
     Indication: CHRONIC OBSTRUCTIVE PULMONARY DISEASE
     Route: 065

REACTIONS (2)
  - Dyspnoea [Unknown]
  - Incorrect dose administered [Unknown]
